APPROVED DRUG PRODUCT: CARNEXIV
Active Ingredient: CARBAMAZEPINE
Strength: 200MG/20ML (10MG/ML)
Dosage Form/Route: SOLUTION;INTRAVENOUS
Application: N206030 | Product #001
Applicant: LUNDBECK PHARMACEUTICALS LLC
Approved: Oct 7, 2016 | RLD: Yes | RS: No | Type: DISCN

PATENTS:
Patent 9629797 | Expires: Nov 10, 2028
Patent 9629797 | Expires: Nov 10, 2028
Patent 9629797 | Expires: Nov 10, 2028
Patent 9493582 | Expires: Feb 27, 2033
Patent 7635773 | Expires: Mar 13, 2029
Patent 9750822 | Expires: Mar 13, 2029
Patent 9770407 | Expires: Nov 10, 2028
Patent 8410077 | Expires: Mar 13, 2029
Patent 11529357 | Expires: Jan 31, 2040